FAERS Safety Report 5064628-0 (Version None)
Quarter: 2006Q3

REPORT INFORMATION
  Report Type: 
  Country: None (occurrence: None)
  Receive Date: 20060728
  Receipt Date: 20051103
  Transmission Date: 20061208
  Serious: Yes (Hospitalization, Disabling)
  Sender: FDA-Public Use
  Company Number: US-ROCHE-423642

PATIENT
  Age: 46 Year
  Sex: Male
  Weight: 81.6 kg

DRUGS (4)
  1. ACCUTANE [Suspect]
     Indication: ACNE
     Route: 048
     Dates: start: 19970615, end: 19980615
  2. COZAAR [Concomitant]
     Indication: HYPERTENSION
  3. CLARITIN-D [Concomitant]
  4. FIORICET [Concomitant]

REACTIONS (54)
  - ALCOHOL USE [None]
  - ANHEDONIA [None]
  - ANXIETY [None]
  - ASTHENIA [None]
  - COLITIS [None]
  - COLITIS ULCERATIVE [None]
  - COUGH [None]
  - CROHN'S DISEASE [None]
  - CYSTITIS [None]
  - DECREASED APPETITE [None]
  - DEHYDRATION [None]
  - DEMYELINATION [None]
  - DEPRESSED MOOD [None]
  - DILATATION ATRIAL [None]
  - DISTURBANCE IN ATTENTION [None]
  - DIZZINESS [None]
  - DYSPNOEA [None]
  - EMOTIONAL DISTRESS [None]
  - EPIDIDYMAL CYST [None]
  - FAILURE TO THRIVE [None]
  - FATIGUE [None]
  - FEELING GUILTY [None]
  - FEELINGS OF WORTHLESSNESS [None]
  - FLATULENCE [None]
  - FLIGHT OF IDEAS [None]
  - GASTROINTESTINAL DISORDER [None]
  - GASTROINTESTINAL OEDEMA [None]
  - HAEMOGLOBIN DECREASED [None]
  - HEADACHE [None]
  - HYPERTENSION [None]
  - INCREASED APPETITE [None]
  - INFLAMMATORY BOWEL DISEASE [None]
  - INSOMNIA [None]
  - INTERVERTEBRAL DISC DEGENERATION [None]
  - INTESTINAL HAEMORRHAGE [None]
  - IRRITABILITY [None]
  - JOINT EFFUSION [None]
  - MALNUTRITION [None]
  - MENTAL DISORDER [None]
  - MICTURITION URGENCY [None]
  - MUSCULOSKELETAL PAIN [None]
  - OSTEOPOROTIC FRACTURE [None]
  - PHARYNGITIS [None]
  - PLATELET COUNT INCREASED [None]
  - RECTAL HAEMORRHAGE [None]
  - RESTLESSNESS [None]
  - ROTATOR CUFF SYNDROME [None]
  - SINUSITIS [None]
  - SPINAL COLUMN STENOSIS [None]
  - THERAPY NON-RESPONDER [None]
  - URINARY RETENTION [None]
  - VARICOCELE [None]
  - WEIGHT DECREASED [None]
  - WHITE BLOOD CELL COUNT INCREASED [None]
